FAERS Safety Report 9005188 (Version 1)
Quarter: 2013Q1

REPORT INFORMATION
  Report Type: Spontaneous
  Country: US (occurrence: US)
  Receive Date: 20130108
  Receipt Date: 20130108
  Transmission Date: 20140127
  Serious: No
  Sender: FDA-Public Use
  Company Number: US-ASTRAZENECA-2012SE96059

PATIENT
  Age: 71 Year
  Sex: Male
  Weight: 70.3 kg

DRUGS (2)
  1. NEXIUM [Suspect]
     Indication: GASTROOESOPHAGEAL REFLUX DISEASE
     Route: 048
     Dates: start: 20121221
  2. PRILOSEC [Suspect]
     Indication: GASTROOESOPHAGEAL REFLUX DISEASE
     Route: 048
     Dates: start: 20121213, end: 20121219

REACTIONS (7)
  - Dyspnoea [Not Recovered/Not Resolved]
  - Dysphonia [Unknown]
  - Choking [Unknown]
  - Oropharyngeal pain [Unknown]
  - Throat tightness [Unknown]
  - Night sweats [Not Recovered/Not Resolved]
  - Drug ineffective [Unknown]
